FAERS Safety Report 20581699 (Version 40)
Quarter: 2022Q4

REPORT INFORMATION
  Report Type: Report from Study
  Country: TR (occurrence: None)
  Receive Date: 20220311
  Receipt Date: 20221024
  Transmission Date: 20230112
  Serious: Yes (Hospitalization)
  Sender: FDA-Public Use
  Company Number: TR-Eisai Medical Research-EC-2022-110292

PATIENT
  Age: 65 Year
  Sex: Female
  Weight: 71 kg

DRUGS (10)
  1. LENVATINIB [Suspect]
     Active Substance: LENVATINIB
     Indication: Endometrial cancer
     Dosage: STARTING DOSE AT 20 MG, FLUCTUATED DOSAGE
     Route: 048
     Dates: start: 20220228, end: 20220303
  2. LENVATINIB [Suspect]
     Active Substance: LENVATINIB
     Dosage: STARTING DOSE AT 14 MG, FLUCTUATED DOSAGE
     Route: 048
     Dates: start: 20220322
  3. PEMBROLIZUMAB [Suspect]
     Active Substance: PEMBROLIZUMAB
     Indication: Endometrial cancer
     Dosage: VIBOSTOLIMAB (MK-7684) 200 MG (+) PEMBROLIZUMAB (MK-3475) (MK-7684A) 200 MG
     Route: 041
     Dates: start: 20220228, end: 20220228
  4. VIBOSTOLIMAB [Suspect]
     Active Substance: VIBOSTOLIMAB
     Dosage: VIBOSTOLIMAB (MK-7684) 200 MG (+) PEMBROLIZUMAB (MK-3475) (MK-7684A) 200 MG
     Route: 041
     Dates: start: 20220322
  5. OLMESARTAN MEDOXOMIL [Concomitant]
     Active Substance: OLMESARTAN MEDOXOMIL
     Dates: start: 20150101, end: 20220916
  6. PANTOPRAZOLE SODIUM [Concomitant]
     Active Substance: PANTOPRAZOLE SODIUM
     Dates: start: 20200101
  7. LUSTRAL [Concomitant]
     Active Substance: SERTRALINE HYDROCHLORIDE
     Dates: start: 20200101
  8. DESYREL [Concomitant]
     Active Substance: TRAZODONE HYDROCHLORIDE
     Dates: start: 20200101
  9. TRAMADOL HYDROCHLORIDE [Concomitant]
     Active Substance: TRAMADOL HYDROCHLORIDE
     Dates: start: 20200101
  10. KAPTORIL [Concomitant]
     Dates: start: 20220228

REACTIONS (1)
  - Wound infection [Recovered/Resolved]

NARRATIVE: CASE EVENT DATE: 20220302
